FAERS Safety Report 5856797-7 (Version None)
Quarter: 2008Q3

REPORT INFORMATION
  Report Type: 
  Country: None (occurrence: None)
  Receive Date: 20080822
  Receipt Date: 20080822
  Transmission Date: 20090109
  Serious: No
  Sender: FDA-Public Use
  Company Number: None

PATIENT
  Age: 89 Year
  Sex: Male

DRUGS (1)
  1. CARBIDOPA AND LEVODOPA [Suspect]
     Dosage: 1 TAB BID PO
     Route: 048
     Dates: start: 20080813, end: 20080821

REACTIONS (3)
  - DIZZINESS [None]
  - GAIT DISTURBANCE [None]
  - SYNCOPE [None]
